FAERS Safety Report 5890277-8 (Version None)
Quarter: 2008Q3

REPORT INFORMATION
  Report Type: 
  Country: None (occurrence: None)
  Receive Date: 20080919
  Receipt Date: 20080908
  Transmission Date: 20090109
  Serious: Yes (Other)
  Sender: FDA-Public Use
  Company Number: US-PFIZER INC-2008078467

PATIENT
  Sex: Male
  Weight: 128.4 kg

DRUGS (12)
  1. CHANTIX [Suspect]
     Indication: SMOKING CESSATION THERAPY
  2. GABAPENTIN [Concomitant]
  3. NEXIUM [Concomitant]
  4. LIPITOR [Concomitant]
  5. THEOPHYLLINE [Concomitant]
  6. AMBIEN [Concomitant]
     Indication: INSOMNIA
  7. ALLOPURINOL [Concomitant]
  8. OXYCODONE HCL [Concomitant]
  9. SOMA [Concomitant]
  10. FUROSEMIDE [Concomitant]
  11. XANAX [Concomitant]
  12. PROMETHAZINE [Concomitant]

REACTIONS (1)
  - HYPERTENSION [None]
